FAERS Safety Report 9280451 (Version 1)
Quarter: 2013Q2

REPORT INFORMATION
  Report Type: Spontaneous
  Country: US (occurrence: None)
  Receive Date: 20130507
  Receipt Date: 20130507
  Transmission Date: 20140414
  Serious: Yes (Other)
  Sender: FDA-Public Use
  Company Number: None

PATIENT
  Age: 29 Year
  Sex: Male
  Weight: 111.13 kg

DRUGS (1)
  1. MULTIHANCE [Suspect]
     Indication: TRICUSPID VALVE DISEASE
     Dosage: 30CC TOTAL
     Route: 042
     Dates: start: 20130412, end: 20130412

REACTIONS (2)
  - Urticaria [None]
  - Nasal congestion [None]
